FAERS Safety Report 15569095 (Version 1)
Quarter: 2018Q4

REPORT INFORMATION
  Report Type: Spontaneous
  Country: US (occurrence: US)
  Receive Date: 20181031
  Receipt Date: 20181031
  Transmission Date: 20190205
  Serious: Yes (Other)
  Sender: FDA-Public Use
  Company Number: US-ZYDUS-029386

PATIENT
  Age: 25 Year
  Sex: Female

DRUGS (2)
  1. DESONIDE/DESONIDE DISODIUM PHOSPHATE [Suspect]
     Active Substance: DESONIDE
     Indication: DERMATITIS ATOPIC
     Route: 061
  2. DESOXIMETASONE. [Suspect]
     Active Substance: DESOXIMETASONE
     Indication: DERMATITIS ATOPIC
     Route: 061

REACTIONS (4)
  - Skin plaque [Recovered/Resolved]
  - Rash erythematous [Recovered/Resolved]
  - Dermatitis atopic [Recovered/Resolved]
  - Eczema [Recovered/Resolved]
